FAERS Safety Report 20813261 (Version 1)
Quarter: 2022Q2

REPORT INFORMATION
  Report Type: Spontaneous
  Country: GB (occurrence: GB)
  Receive Date: 20220511
  Receipt Date: 20220511
  Transmission Date: 20220721
  Serious: Yes (Disabling, Other)
  Sender: FDA-Public Use
  Company Number: None

PATIENT
  Age: 81 Year
  Sex: Male

DRUGS (8)
  1. AMLODIPINE [Suspect]
     Active Substance: AMLODIPINE BESYLATE
     Indication: Product used for unknown indication
     Dates: start: 20220422, end: 20220429
  2. ATORVASTATIN [Concomitant]
     Active Substance: ATORVASTATIN
  3. PEPPERMINT OIL [Concomitant]
     Active Substance: PEPPERMINT OIL
  4. RAMIPRIL [Concomitant]
     Active Substance: RAMIPRIL
  5. ALBUTEROL [Concomitant]
     Active Substance: ALBUTEROL
  6. SERETIDE [Concomitant]
     Active Substance: FLUTICASONE PROPIONATE\SALMETEROL XINAFOATE
  7. SILDENAFIL [Concomitant]
     Active Substance: SILDENAFIL
  8. SPIRIVA [Concomitant]
     Active Substance: TIOTROPIUM BROMIDE MONOHYDRATE

REACTIONS (1)
  - Burning feet syndrome [Not Recovered/Not Resolved]
